FAERS Safety Report 4761048-0 (Version None)
Quarter: 2005Q3

REPORT INFORMATION
  Report Type: 
  Country: None (occurrence: None)
  Receive Date: 20050901
  Receipt Date: 20050823
  Transmission Date: 20060218
  Serious: Yes (Hospitalization)
  Sender: FDA-Public Use
  Company Number: 2005118621

PATIENT
  Age: 71 Year
  Sex: Male

DRUGS (13)
  1. DOXAZOSIN (DOXAZOSIN) [Suspect]
     Indication: HYPERTENSION
     Dosage: SEE IMAGE
     Route: 048
     Dates: start: 20010619, end: 20011122
  2. DOXAZOSIN (DOXAZOSIN) [Suspect]
     Indication: HYPERTENSION
     Dosage: SEE IMAGE
     Route: 048
     Dates: start: 20011123, end: 20050221
  3. ATENOLOL [Suspect]
     Indication: HYPERTENSION
     Dosage: SEE IMAGE
     Route: 048
     Dates: start: 19990514, end: 19991115
  4. ATENOLOL [Suspect]
     Indication: HYPERTENSION
     Dosage: SEE IMAGE
     Route: 048
     Dates: start: 19991116, end: 20021105
  5. ATENOLOL [Suspect]
     Indication: HYPERTENSION
     Dosage: SEE IMAGE
     Route: 048
     Dates: start: 20021105, end: 20040513
  6. ATENOLOL [Suspect]
     Indication: HYPERTENSION
     Dosage: SEE IMAGE
     Route: 048
     Dates: start: 20040514, end: 20040527
  7. ATORVASTATIN CALCIUM [Suspect]
     Indication: ILL-DEFINED DISORDER
     Dates: start: 19990514, end: 19990526
  8. BENDROFLUMETHIAZIDE/POTASSIUM CHLORIDE (BENDROFLUMETHIAZIDE, POTASSIUM [Suspect]
     Indication: HYPERTENSION
     Dosage: SEE IMAGE
     Route: 048
     Dates: start: 19991216, end: 20000516
  9. BENDROFLUMETHIAZIDE/POTASSIUM CHLORIDE (BENDROFLUMETHIAZIDE, POTASSIUM [Suspect]
     Indication: HYPERTENSION
     Dosage: SEE IMAGE
     Route: 048
     Dates: start: 20000517, end: 20050221
  10. GLUCOBAY [Concomitant]
  11. COZAAR [Concomitant]
  12. AMARYL [Concomitant]
  13. WARFARIN SODIUM [Concomitant]

REACTIONS (10)
  - ACCIDENTAL OVERDOSE [None]
  - ATRIAL FIBRILLATION [None]
  - ATRIOVENTRICULAR BLOCK [None]
  - CHEST PAIN [None]
  - INCISION SITE COMPLICATION [None]
  - LOSS OF CONSCIOUSNESS [None]
  - POST PROCEDURAL COMPLICATION [None]
  - POSTOPERATIVE FEVER [None]
  - POSTOPERATIVE INFECTION [None]
  - SYNCOPE [None]
